FAERS Safety Report 6256967-2 (Version None)
Quarter: 2009Q3

REPORT INFORMATION
  Report Type: 
  Country: None (occurrence: None)
  Receive Date: 20090701
  Receipt Date: 20090701
  Transmission Date: 20100115
  Serious: No
  Sender: FDA-Public Use
  Company Number: None

PATIENT
  Age: 52 Year
  Sex: Female
  Weight: 80.7403 kg

DRUGS (1)
  1. LYRICA [Suspect]
     Indication: BACK PAIN
     Dosage: 150 MG 2X DAILY PO; OFF AND ON FOR LAST 12 MO.
     Route: 048

REACTIONS (10)
  - CONSTIPATION [None]
  - ELECTROCARDIOGRAM ABNORMAL [None]
  - GAIT DISTURBANCE [None]
  - HEART RATE INCREASED [None]
  - HYPERSOMNIA [None]
  - MENTAL IMPAIRMENT [None]
  - OEDEMA PERIPHERAL [None]
  - RESPIRATORY RATE DECREASED [None]
  - SWOLLEN TONGUE [None]
  - WEIGHT INCREASED [None]
